FAERS Safety Report 6687407-7 (Version None)
Quarter: 2010Q2

REPORT INFORMATION
  Report Type: 
  Country: None (occurrence: None)
  Receive Date: 20100416
  Receipt Date: 20100416
  Transmission Date: 20101027
  Serious: Yes (Other)
  Sender: FDA-Public Use
  Company Number: None

PATIENT
  Sex: Male
  Weight: 72.5755 kg

DRUGS (1)
  1. ZYPREXA [Suspect]
     Indication: BIPOLAR I DISORDER
     Dosage: 10 MG 1 QHS PO
     Route: 048
     Dates: start: 20100408, end: 20100414

REACTIONS (4)
  - FAECAL INCONTINENCE [None]
  - SLEEP TALKING [None]
  - SOMNAMBULISM [None]
  - URINARY INCONTINENCE [None]
